FAERS Safety Report 10188426 (Version 1)
Quarter: 2014Q2

REPORT INFORMATION
  Report Type: Spontaneous
  Country: US (occurrence: US)
  Receive Date: 20140522
  Receipt Date: 20140522
  Transmission Date: 20141212
  Serious: No
  Sender: FDA-Public Use
  Company Number: US-009507513-1405USA009216

PATIENT
  Sex: Male

DRUGS (2)
  1. MIRALAX [Suspect]
     Indication: PRODUCT USED FOR UNKNOWN INDICATION
     Dosage: UNK, UNKNOWN
     Route: 048
     Dates: start: 20140504
  2. MIRALAX [Suspect]
     Dosage: UNK, UNKNOWN
     Route: 048

REACTIONS (3)
  - Underdose [Unknown]
  - Circumstance or information capable of leading to medication error [Unknown]
  - Drug effect decreased [Unknown]
